FAERS Safety Report 6164512-5 (Version None)
Quarter: 2009Q2

REPORT INFORMATION
  Report Type: 
  Country: None (occurrence: None)
  Receive Date: 20090421
  Receipt Date: 20090408
  Transmission Date: 20091009
  Serious: Yes (Other)
  Sender: FDA-Public Use
  Company Number: IDA-00195

PATIENT
  Age: 81 Year
  Sex: Female

DRUGS (11)
  1. PROPRANOLOL [Suspect]
     Indication: ANXIETY
     Dosage: 40 MG BID ORAL
     Route: 048
     Dates: start: 20090312
  2. (ZOPICLONE) [Suspect]
     Indication: ANXIETY
     Dosage: 3.75 MG HS ORAL / 7.5 MG HS ORAL
     Route: 048
     Dates: end: 20090310
  3. (ZOPICLONE) [Suspect]
     Indication: SEDATION
     Dosage: 3.75 MG HS ORAL / 7.5 MG HS ORAL
     Route: 048
     Dates: end: 20090310
  4. (ZOPICLONE) [Suspect]
     Indication: ANXIETY
     Dosage: 3.75 MG HS ORAL / 7.5 MG HS ORAL
     Route: 048
     Dates: start: 20090310, end: 20090316
  5. (ZOPICLONE) [Suspect]
     Indication: SEDATION
     Dosage: 3.75 MG HS ORAL / 7.5 MG HS ORAL
     Route: 048
     Dates: start: 20090310, end: 20090316
  6. BISOPROLOL FUMARATE [Concomitant]
  7. BUPRENORPHINE HCL [Concomitant]
  8. FUROSEMIDE [Concomitant]
  9. MIRTAZAPINE [Concomitant]
  10. OMEPRAZOLE [Concomitant]
  11. (RAMIPRIL) [Concomitant]

REACTIONS (4)
  - DYSPNOEA [None]
  - ERYTHEMA [None]
  - PRURITUS [None]
  - SWELLING FACE [None]
